FAERS Safety Report 7652943-3 (Version None)
Quarter: 2011Q3

REPORT INFORMATION
  Report Type: 
  Country: None (occurrence: None)
  Receive Date: 20110722
  Receipt Date: 20101115
  Transmission Date: 20111222
  Serious: Yes (Hospitalization)
  Sender: FDA-Public Use
  Company Number: UTC-002385

PATIENT
  Age: 25 Year
  Sex: Female
  Weight: 71.4 kg

DRUGS (2)
  1. REMODULIN [Suspect]
     Indication: PULMONARY ARTERIAL HYPERTENSION
     Dosage: 83.52 UG/KG (0.058 UG/KG, 1 IN 1 MIN), SUBCUTANEOUS
     Route: 058
     Dates: start: 20100424
  2. ADCIRCA [Concomitant]

REACTIONS (3)
  - DYSPNOEA [None]
  - PARAESTHESIA [None]
  - CHEST DISCOMFORT [None]
